FAERS Safety Report 10646591 (Version 1)
Quarter: 2014Q4

REPORT INFORMATION
  Report Type: Report from Study
  Country: CA (occurrence: CA)
  Receive Date: 20141211
  Receipt Date: 20141211
  Transmission Date: 20150529
  Serious: Yes (Hospitalization, Other)
  Sender: FDA-Public Use
  Company Number: CA-JNJFOC-20141203652

PATIENT
  Age: 63 Year
  Sex: Female
  Weight: 71.53 kg

DRUGS (2)
  1. REMICADE [Suspect]
     Active Substance: INFLIXIMAB
     Indication: CROHN^S DISEASE
     Route: 042
     Dates: start: 20131126
  2. CALCIUM D VITAMIN [Concomitant]
     Dosage: 400 U/I
     Route: 065

REACTIONS (3)
  - Ileal stenosis [Recovered/Resolved]
  - Postoperative wound infection [Recovered/Resolved]
  - Post procedural fistula [Recovered/Resolved]

NARRATIVE: CASE EVENT DATE: 2014
